FAERS Safety Report 22388679 (Version 1)
Quarter: 2023Q2

REPORT INFORMATION
  Report Type: Spontaneous
  Country: US (occurrence: US)
  Receive Date: 20230531
  Receipt Date: 20230531
  Transmission Date: 20230721
  Serious: No
  Sender: FDA-Public Use
  Company Number: US-BAYER-2023A072872

PATIENT
  Age: 74 Year
  Sex: Female

DRUGS (5)
  1. CLIMARA [Suspect]
     Active Substance: ESTRADIOL
     Route: 062
  2. VIVELLE-DOT [Suspect]
     Active Substance: ESTRADIOL
     Route: 062
  3. ESTRADIOL [Suspect]
     Active Substance: ESTRADIOL
  4. LACTATE 1 2 3 [Concomitant]
     Indication: Lactose intolerance
  5. PROBIOTICS NOS [Concomitant]
     Active Substance: PROBIOTICS NOS

REACTIONS (1)
  - Application site rash [None]
